FAERS Safety Report 5671680-8 (Version None)
Quarter: 2008Q1

REPORT INFORMATION
  Report Type: 
  Country: None (occurrence: None)
  Receive Date: 20080314
  Receipt Date: 20080310
  Transmission Date: 20080703
  Serious: Yes (Death)
  Sender: FDA-Public Use
  Company Number: 163-21880-08021622

PATIENT
  Age: 80 Year
  Sex: Male

DRUGS (1)
  1. REVLIMID [Suspect]
     Indication: MYELOFIBROSIS
     Dosage: 5 MG, 1 IN D, ORAL
     Route: 048
     Dates: start: 20071220, end: 20080204

REACTIONS (2)
  - DISEASE PROGRESSION [None]
  - MYELOFIBROSIS [None]
